FAERS Safety Report 19125754 (Version 1)
Quarter: 2021Q2

REPORT INFORMATION
  Report Type: Spontaneous
  Country: US (occurrence: US)
  Receive Date: 20210412
  Receipt Date: 20210412
  Transmission Date: 20210717
  Serious: No
  Sender: FDA-Public Use
  Company Number: US-INTRA-CELLULAR THERAPIES, INC.-2021ICT00028

PATIENT
  Age: 48 Year
  Sex: Female
  Weight: 83.9 kg

DRUGS (6)
  1. LAMICTAL XR [Concomitant]
     Active Substance: LAMOTRIGINE
     Dosage: 300 MG
  2. CAPLYTA [Suspect]
     Active Substance: LUMATEPERONE
     Indication: BIPOLAR DISORDER
     Dosage: 42 MG, 1X/DAY
     Route: 048
     Dates: start: 20201227, end: 20210109
  3. CAPLYTA [Suspect]
     Active Substance: LUMATEPERONE
     Dosage: 42 MG
     Dates: start: 2021
  4. CONCERTA [Concomitant]
     Active Substance: METHYLPHENIDATE HYDROCHLORIDE
     Dosage: 36 MG
  5. VALSARTAN. [Concomitant]
     Active Substance: VALSARTAN
     Dosage: 160 MG
  6. CLONAZEPAM. [Concomitant]
     Active Substance: CLONAZEPAM
     Dosage: 1 MG, 1X/DAY AT BEDTIME

REACTIONS (5)
  - Peripheral swelling [Recovered/Resolved]
  - Nausea [Unknown]
  - Off label use [Unknown]
  - Depression [Unknown]
  - Decreased appetite [Recovered/Resolved]

NARRATIVE: CASE EVENT DATE: 20201227
